FAERS Safety Report 8786054 (Version 1)
Quarter: 2012Q4

REPORT INFORMATION
  Report Type: 
  Country: US (occurrence: US)
  Receive Date: 20120914
  Receipt Date: 20120914
  Transmission Date: 20130627
  Serious: Yes (Other)
  Sender: FDA-Public Use
  Company Number: PHEH2012US017842

PATIENT
  Sex: Female

DRUGS (6)
  1. AREDIA [Suspect]
     Indication: METASTASES TO BONE
  2. VICODIN [Concomitant]
  3. SYNTHROID [Concomitant]
  4. ALBUTEROL [Concomitant]
  5. ASPIRIN [Concomitant]
  6. EFFEXOR [Concomitant]

REACTIONS (1)
  - Intervertebral disc protrusion [Unknown]
